FAERS Safety Report 10362173 (Version 1)
Quarter: 2014Q1

REPORT INFORMATION
  Report Type: Spontaneous
  Country: US (occurrence: None)
  Receive Date: 20140306
  Receipt Date: 20140306
  Transmission Date: 20141002
  Serious: Yes (Other)
  Sender: FDA-Public Use
  Company Number: 163-21880-13021053

PATIENT
  Age: 77 Year
  Sex: Female

DRUGS (9)
  1. REVLIMID (LENALIDOMIDE) (15 MILLIGRAM, CAPSULES) [Suspect]
     Indication: PLASMA CELL MYELOMA
     Route: 048
     Dates: start: 20111022
  2. MULTIVITAMINS (UNKNOWN) [Concomitant]
  3. DEXAMETHASONE (UNKNOWN) [Concomitant]
  4. SOTALOL (UNKNOWN) [Concomitant]
  5. ASA (ACETYLSALICYLIC ACID) (UNKNOWN) [Concomitant]
  6. CALCIUM (UNKNOWN) [Concomitant]
  7. VITAMIN D (ERGOCALCIFEROL) (UNKNOWN) [Concomitant]
  8. FISH OIL (UNKNOWN) [Concomitant]
  9. IMODIUM (LOPERAMIDE HYDROCHLORIDE) (UNKNOWN) [Concomitant]

REACTIONS (3)
  - Atrial fibrillation [None]
  - Insomnia [None]
  - Diarrhoea [None]
